FAERS Safety Report 5487472-9 (Version None)
Quarter: 2007Q4

REPORT INFORMATION
  Report Type: 
  Country: None (occurrence: None)
  Receive Date: 20071015
  Receipt Date: 20071010
  Transmission Date: 20080405
  Serious: Yes (Death)
  Sender: FDA-Public Use
  Company Number: 510-5-2005-31068

PATIENT
  Age: 80 Year
  Sex: Male
  Weight: 83 kg

DRUGS (7)
  1. LIDOCAINE [Suspect]
     Indication: POST HERPETIC NEURALGIA
     Dosage: 3 PATCHES A DAY
     Dates: start: 20040422
  2. OMNIC [Concomitant]
  3. EUCARDIN [Concomitant]
  4. DIAPREL [Concomitant]
  5. MAGLEK [Concomitant]
  6. NEURONTIN [Concomitant]
  7. PRESTARIUM [Concomitant]

REACTIONS (1)
  - SUDDEN DEATH [None]
